FAERS Safety Report 22045471 (Version 1)
Quarter: 2023Q1

REPORT INFORMATION
  Report Type: Spontaneous
  Country: US (occurrence: US)
  Receive Date: 20230228
  Receipt Date: 20230228
  Transmission Date: 20230418
  Serious: Yes (Life-Threatening, Hospitalization, Other)
  Sender: FDA-Public Use
  Company Number: US-MLMSERVICE-20230209-4095802-1

PATIENT

DRUGS (3)
  1. CARVEDILOL [Suspect]
     Active Substance: CARVEDILOL
     Indication: Suicide attempt
     Dosage: UNK
     Route: 065
  2. DILTIAZEM HYDROCHLORIDE [Suspect]
     Active Substance: DILTIAZEM HYDROCHLORIDE
     Indication: Suicide attempt
     Dosage: UNK
     Route: 065
  3. ALDACTONE [Concomitant]
     Active Substance: SPIRONOLACTONE
     Indication: Suicide attempt
     Dosage: UNK
     Route: 065

REACTIONS (4)
  - Confusional state [Recovered/Resolved]
  - Intentional overdose [Unknown]
  - Bradycardia [Recovered/Resolved]
  - Hypotension [Recovered/Resolved]
